FAERS Safety Report 23377888 (Version 4)
Quarter: 2024Q2

REPORT INFORMATION
  Report Type: Report from Study
  Country: US (occurrence: US)
  Receive Date: 20240108
  Receipt Date: 20240521
  Transmission Date: 20240716
  Serious: Yes (Hospitalization, Other)
  Sender: FDA-Public Use
  Company Number: US-002147023-NVSC2021US278928

PATIENT
  Sex: Female
  Weight: 68.027 kg

DRUGS (11)
  1. TREPROSTINIL [Suspect]
     Active Substance: TREPROSTINIL
     Indication: Pulmonary arterial hypertension
     Dosage: 30 NG/KG/MIN, CONT
     Route: 058
     Dates: start: 20211130
  2. TREPROSTINIL [Suspect]
     Active Substance: TREPROSTINIL
     Dosage: 43 NG/KG/MIN, CONT
     Route: 058
  3. TREPROSTINIL [Suspect]
     Active Substance: TREPROSTINIL
     Dosage: 52 NG/KG/MIN, CONT
     Route: 058
  4. TREPROSTINIL [Suspect]
     Active Substance: TREPROSTINIL
     Dosage: 80 NG/KG/MIN, CONT
     Route: 042
  5. TREPROSTINIL [Suspect]
     Active Substance: TREPROSTINIL
     Dosage: 80 NG/KG/MIN, CONT
     Route: 042
  6. TREPROSTINIL [Suspect]
     Active Substance: TREPROSTINIL
     Dosage: 80 NG/KG/MIN, CONT
     Route: 042
     Dates: start: 20221104
  7. TREPROSTINIL [Suspect]
     Active Substance: TREPROSTINIL
     Dosage: 80 NG/KG/MIN
     Route: 042
     Dates: start: 20211130
  8. TREPROSTINIL [Suspect]
     Active Substance: TREPROSTINIL
     Dosage: 80 NG/KG/MIN
     Route: 042
     Dates: start: 20221104
  9. OPSUMIT [Concomitant]
     Active Substance: MACITENTAN
     Indication: Product used for unknown indication
     Dosage: UNK
     Route: 065
  10. REMODULIN [Concomitant]
     Active Substance: TREPROSTINIL
     Indication: Product used for unknown indication
     Dosage: UNK
     Route: 065
  11. SILDENAFIL CITRATE [Concomitant]
     Active Substance: SILDENAFIL CITRATE
     Indication: Product used for unknown indication
     Dosage: UNK
     Route: 065

REACTIONS (25)
  - Urinary bladder haemorrhage [Unknown]
  - Renal haemorrhage [Unknown]
  - Hypervolaemia [Unknown]
  - Urinary tract infection [Unknown]
  - Tachycardia [Unknown]
  - Heart rate increased [Unknown]
  - Cold sweat [Unknown]
  - Dyspnoea [Not Recovered/Not Resolved]
  - Nausea [Unknown]
  - Anxiety [Unknown]
  - Hypotension [Unknown]
  - Dizziness [Unknown]
  - Hypotension [Unknown]
  - Syncope [Unknown]
  - Purulent discharge [Unknown]
  - Catheter site haemorrhage [Unknown]
  - Catheter site pruritus [Unknown]
  - Catheter site discharge [Unknown]
  - Malaise [Unknown]
  - Fatigue [Unknown]
  - Infusion site erythema [Unknown]
  - Infusion site pain [Unknown]
  - Infusion site discomfort [Unknown]
  - Upper respiratory tract infection [Unknown]
  - Cough [Unknown]
